FAERS Safety Report 7784872-9 (Version None)
Quarter: 2011Q3

REPORT INFORMATION
  Report Type: 
  Country: None (occurrence: None)
  Receive Date: 20110928
  Receipt Date: 20110916
  Transmission Date: 20111222
  Serious: Yes (Hospitalization)
  Sender: FDA-Public Use
  Company Number: JP-SANOFI-AVENTIS-2011SA061479

PATIENT
  Age: 87 Year
  Sex: Female
  Weight: 71.6 kg

DRUGS (29)
  1. HEPARIN [Concomitant]
     Route: 042
     Dates: start: 20090921, end: 20090921
  2. LOXONIN [Concomitant]
     Dosage: FREQUENCY: FREQUENT USE
     Route: 048
     Dates: start: 20090921, end: 20090930
  3. CLONAZEPAM [Concomitant]
     Route: 048
  4. NICORANDIL [Concomitant]
     Dosage: 2  MG/HOURX CONTINUING,
     Dates: start: 20090921, end: 20090923
  5. ISOSORBIDE DINITRATE [Concomitant]
     Dosage: FREQUENT USE
     Route: 048
     Dates: start: 20091013, end: 20091017
  6. ALL OTHER THERAPEUTIC PRODUCTS [Concomitant]
     Route: 048
     Dates: end: 20091206
  7. DEPAS [Concomitant]
     Route: 048
     Dates: start: 20090925
  8. DIART [Concomitant]
     Route: 048
     Dates: start: 20090926
  9. CLOPIDOGREL BISULFATE [Suspect]
     Route: 065
     Dates: start: 20090921, end: 20090921
  10. RABEPRAZOLE SODIUM [Concomitant]
     Route: 048
     Dates: start: 20090921
  11. HALCION [Concomitant]
     Route: 048
     Dates: start: 20090921
  12. HANP [Concomitant]
     Dosage: DOSE= 60 MCG/HR X CONTINUING
     Dates: start: 20090921, end: 20090921
  13. MUCOSOLVAN [Concomitant]
     Route: 048
     Dates: start: 20090926, end: 20091007
  14. PERINDOPRIL ERBUMINE [Concomitant]
     Route: 048
     Dates: start: 20090930
  15. ASPIRIN [Concomitant]
     Route: 048
     Dates: start: 20090921
  16. VERAPAMIL HCL [Concomitant]
     Dosage: FREQUENT USE
     Dates: start: 20090922, end: 20090924
  17. PRIMPERAN TAB [Concomitant]
     Dosage: FREQUENT USE
     Dates: start: 20090921, end: 20090921
  18. AMIODARONE HCL [Concomitant]
     Route: 048
     Dates: start: 20091207
  19. CEFAZOLIN [Concomitant]
     Indication: INFECTION PROPHYLAXIS
     Dates: start: 20090921, end: 20090924
  20. MAGNESIUM OXIDE [Concomitant]
     Route: 048
     Dates: start: 20090926, end: 20091012
  21. MAGNESIUM OXIDE [Concomitant]
     Route: 048
     Dates: start: 20091013
  22. ALDACTONE [Concomitant]
     Route: 048
     Dates: start: 20090926, end: 20091007
  23. AMIODARONE HCL [Concomitant]
     Route: 048
     Dates: start: 20091003, end: 20091007
  24. HEPARIN [Concomitant]
     Dosage: DOSE: 320-440 UNITS/HOUR, FREQUENCY: CONTINUED
     Route: 042
     Dates: start: 20090921, end: 20090923
  25. AMIODARONE HCL [Concomitant]
     Route: 048
     Dates: start: 20091008, end: 20091206
  26. ATORVASTATIN [Concomitant]
     Route: 048
     Dates: start: 20090921
  27. CLOPIDOGREL BISULFATE [Suspect]
     Route: 065
     Dates: start: 20090922, end: 20091206
  28. SENNOSIDE A+B [Concomitant]
     Route: 048
  29. WARFARIN SODIUM [Concomitant]
     Route: 048
     Dates: start: 20090928

REACTIONS (2)
  - URINARY TRACT INFECTION [None]
  - PYREXIA [None]
